FAERS Safety Report 23347797 (Version 6)
Quarter: 2024Q1

REPORT INFORMATION
  Report Type: Report from Study
  Country: CA (occurrence: CA)
  Receive Date: 20231228
  Receipt Date: 20240306
  Transmission Date: 20240409
  Serious: Yes (Hospitalization)
  Sender: FDA-Public Use
  Company Number: CA-JNJFOC-20230361324

PATIENT
  Age: 5 Decade
  Sex: Female

DRUGS (16)
  1. MACITENTAN [Suspect]
     Active Substance: MACITENTAN
     Indication: Pulmonary arterial hypertension
     Route: 048
     Dates: start: 20200919
  2. MACITENTAN [Suspect]
     Active Substance: MACITENTAN
     Indication: Pulmonary hypertension
     Route: 048
     Dates: start: 20201009
  3. SELEXIPAG [Interacting]
     Active Substance: SELEXIPAG
     Indication: Pulmonary arterial hypertension
     Route: 048
     Dates: start: 20231207
  4. SELEXIPAG [Interacting]
     Active Substance: SELEXIPAG
     Route: 048
     Dates: start: 20231211
  5. SELEXIPAG [Interacting]
     Active Substance: SELEXIPAG
     Route: 048
  6. DEFERASIROX [Interacting]
     Active Substance: DEFERASIROX
     Indication: Product used for unknown indication
     Route: 065
  7. ADEMPAS [Concomitant]
     Active Substance: RIOCIGUAT
  8. HYDROXYUREA [Concomitant]
     Active Substance: HYDROXYUREA
  9. NABILONE [Concomitant]
     Active Substance: NABILONE
  10. PANTOPRAZOLE [Concomitant]
     Active Substance: PANTOPRAZOLE
  11. LEVOTHYROXINE [Concomitant]
     Active Substance: LEVOTHYROXINE\LEVOTHYROXINE SODIUM
  12. SENOKOT [Concomitant]
     Active Substance: SENNOSIDES
  13. MELATONIN [Concomitant]
     Active Substance: MELATONIN
  14. GRAVOL [Concomitant]
     Active Substance: DIMENHYDRINATE
  15. SALMETEROL [Concomitant]
     Active Substance: SALMETEROL
  16. FRAGMIN [Concomitant]
     Active Substance: DALTEPARIN SODIUM

REACTIONS (7)
  - Headache [Unknown]
  - Right ventricular failure [Not Recovered/Not Resolved]
  - Pain [Unknown]
  - Pulmonary arterial hypertension [Not Recovered/Not Resolved]
  - Hospitalisation [Unknown]
  - Off label use [Unknown]
  - Drug interaction [Unknown]
